FAERS Safety Report 14100024 (Version 3)
Quarter: 2018Q1

REPORT INFORMATION
  Report Type: Report from Study
  Country: US (occurrence: US)
  Receive Date: 20171017
  Receipt Date: 20180313
  Transmission Date: 20180508
  Serious: Yes (Hospitalization)
  Sender: FDA-Public Use
  Company Number: US-PFIZER INC-2017434910

PATIENT
  Age: 10 Year
  Sex: Male
  Weight: 37.4 kg

DRUGS (11)
  1. METHOTREXATE SODIUM. [Suspect]
     Active Substance: METHOTREXATE SODIUM
     Indication: B PRECURSOR TYPE ACUTE LEUKAEMIA
     Dosage: 15 MG, ONCE
     Route: 037
     Dates: start: 20170626
  2. PEGASPARGASE [Suspect]
     Active Substance: PEGASPARGASE
     Indication: B PRECURSOR TYPE ACUTE LEUKAEMIA
     Dosage: 3175 UNITS, ONCE
     Route: 042
     Dates: start: 20170629
  3. DEXAMETHASONE. [Suspect]
     Active Substance: DEXAMETHASONE
     Indication: B PRECURSOR TYPE ACUTE LEUKAEMIA
     Dosage: 6 MG, BID
     Route: 048
     Dates: start: 20170626
  4. VINCRISTINE SULFATE. [Suspect]
     Active Substance: VINCRISTINE SULFATE
     Indication: B PRECURSOR TYPE ACUTE LEUKAEMIA
     Dosage: 1.9 MG, ONCE
     Route: 042
     Dates: start: 20170626
  5. METHOTREXATE SODIUM. [Suspect]
     Active Substance: METHOTREXATE SODIUM
     Dosage: 3410 MG, ONCE
     Route: 042
     Dates: start: 20170626
  6. DOXORUBICIN HCL [Suspect]
     Active Substance: DOXORUBICIN HYDROCHLORIDE
     Indication: B PRECURSOR TYPE ACUTE LEUKAEMIA
     Dosage: 30 MG, ONCE
     Route: 042
     Dates: start: 20170626
  7. CYTARABINE. [Suspect]
     Active Substance: CYTARABINE
     Dosage: 95 MG, DAYS 29-32 AND DAYS 36-39
     Route: 058
     Dates: start: 20170814
  8. CYTARABINE. [Suspect]
     Active Substance: CYTARABINE
     Indication: B PRECURSOR TYPE ACUTE LEUKAEMIA
     Dosage: 95 MG, DAYS 29-32 AND DAYS 36-39
     Route: 042
     Dates: start: 20170814
  9. CYCLOPHOSPHAMIDE. [Suspect]
     Active Substance: CYCLOPHOSPHAMIDE
     Indication: B PRECURSOR TYPE ACUTE LEUKAEMIA
     Dosage: 1270 MG, ONCE
     Route: 042
     Dates: start: 20170814
  10. INCB018424 [Suspect]
     Active Substance: RUXOLITINIB
     Indication: B PRECURSOR TYPE ACUTE LEUKAEMIA
     Dosage: 25 MG, QD
     Route: 048
     Dates: start: 20170202
  11. THIOGUANINE [Suspect]
     Active Substance: THIOGUANINE
     Indication: B PRECURSOR TYPE ACUTE LEUKAEMIA
     Dosage: 60-80 MG DAILY, DAYS 29-42
     Route: 048
     Dates: start: 20170814

REACTIONS (1)
  - Febrile neutropenia [Recovered/Resolved]

NARRATIVE: CASE EVENT DATE: 20170904
